FAERS Safety Report 4854341-4 (Version None)
Quarter: 2005Q4

REPORT INFORMATION
  Report Type: 
  Country: None (occurrence: None)
  Receive Date: 20051213
  Receipt Date: 20051213
  Transmission Date: 20060501
  Serious: Yes (Hospitalization)
  Sender: FDA-Public Use
  Company Number: None

PATIENT
  Sex: Male
  Weight: 61.6892 kg

DRUGS (2)
  1. IRINOTECAN  100MG/5ML   PHARMACIA UPJOHN [Suspect]
     Indication: PANCREATIC CARCINOMA METASTATIC
     Dosage: 160MG/M2  Q21 DAYS  IV DRIP
     Route: 041
     Dates: start: 20051103, end: 20051103
  2. DOCETAXEL  80MG/ML  AVENTIS [Suspect]
     Indication: PANCREATIC CARCINOMA METASTATIC
     Dosage: 65MG/M@  Q21 DAYS  IV DRIP
     Route: 041
     Dates: start: 20051103, end: 20051103

REACTIONS (5)
  - ABDOMINAL PAIN [None]
  - DEHYDRATION [None]
  - NAUSEA [None]
  - PYREXIA [None]
  - VOMITING [None]
